FAERS Safety Report 24615991 (Version 2)
Quarter: 2024Q4

REPORT INFORMATION
  Report Type: Spontaneous
  Country: SG (occurrence: SG)
  Receive Date: 20241113
  Receipt Date: 20241122
  Transmission Date: 20250114
  Serious: Yes (Death, Other)
  Sender: AMGEN
  Company Number: SG-AMGEN-SGPSP2024220207

PATIENT

DRUGS (5)
  1. PEGFILGRASTIM [Suspect]
     Active Substance: PEGFILGRASTIM
     Indication: Prophylaxis
     Dosage: UNK UNK, AFTER CHEMO
     Route: 065
  2. CYCLOPHOSPHAMIDE [Concomitant]
     Active Substance: CYCLOPHOSPHAMIDE
     Indication: Neuroblastoma
     Dosage: 70 MILLIGRAM/KILOGRAM (DAY 1 AND 2)
     Route: 040
  3. VINCRISTINE [Concomitant]
     Active Substance: VINCRISTINE
     Indication: Neuroblastoma
     Dosage: UNK
     Route: 040
  4. ETOPOSIDE [Concomitant]
     Active Substance: ETOPOSIDE
     Indication: Neuroblastoma
     Dosage: UNK (DAY 1-3)
     Route: 040
  5. MELPHALAN [Concomitant]
     Active Substance: MELPHALAN
     Indication: Neuroblastoma
     Dosage: UNK
     Route: 040

REACTIONS (1)
  - Neuroblastoma recurrent [Fatal]
